FAERS Safety Report 12744484 (Version 3)
Quarter: 2018Q4

REPORT INFORMATION
  Report Type: Spontaneous
  Country: US (occurrence: US)
  Receive Date: 20160914
  Receipt Date: 20181105
  Transmission Date: 20190204
  Serious: No
  Sender: FDA-Public Use
  Company Number: US-JAZZ-2016-US-009381

PATIENT
  Sex: Male

DRUGS (16)
  1. COMBIVENT [Concomitant]
     Active Substance: ALBUTEROL SULFATE\IPRATROPIUM BROMIDE
  2. MODAFINIL. [Concomitant]
     Active Substance: MODAFINIL
  3. NUVIGIL [Suspect]
     Active Substance: ARMODAFINIL
     Indication: FEELING ABNORMAL
     Dosage: UNK
     Dates: start: 20160501
  4. CIALIS [Concomitant]
     Active Substance: TADALAFIL
  5. SIMVASTATIN. [Concomitant]
     Active Substance: SIMVASTATIN
  6. XYREM [Suspect]
     Active Substance: SODIUM OXYBATE
     Dosage: 2.25 G, BID
     Route: 048
  7. MULTIVITAMINS [Concomitant]
     Active Substance: VITAMINS
  8. COLACE [Concomitant]
     Active Substance: DOCUSATE SODIUM
  9. LASIX [Concomitant]
     Active Substance: FUROSEMIDE
  10. ASPIRIN. [Concomitant]
     Active Substance: ASPIRIN
  11. XYREM [Suspect]
     Active Substance: SODIUM OXYBATE
     Indication: NARCOLEPSY
     Dosage: 2.25 G, BID
     Route: 048
     Dates: start: 201511, end: 201512
  12. LEXAPRO [Concomitant]
     Active Substance: ESCITALOPRAM OXALATE
  13. BYSTOLIC [Concomitant]
     Active Substance: NEBIVOLOL HYDROCHLORIDE
  14. CELEBREX [Concomitant]
     Active Substance: CELECOXIB
  15. XYREM [Suspect]
     Active Substance: SODIUM OXYBATE
     Indication: CATAPLEXY
     Dosage: 3 G, BID
     Route: 048
     Dates: start: 201512
  16. OMEPRAZOLE. [Concomitant]
     Active Substance: OMEPRAZOLE

REACTIONS (6)
  - Stress [Not Recovered/Not Resolved]
  - Feeling abnormal [Unknown]
  - Condition aggravated [Not Recovered/Not Resolved]
  - Abnormal behaviour [Unknown]
  - Sleep talking [Not Recovered/Not Resolved]
  - Abnormal sleep-related event [Unknown]
